FAERS Safety Report 9132820 (Version 1)
Quarter: 2013Q1

REPORT INFORMATION
  Report Type: Spontaneous
  Country: GB (occurrence: GB)
  Receive Date: 20130301
  Receipt Date: 20130301
  Transmission Date: 20140127
  Serious: Yes (Other)
  Sender: FDA-Public Use
  Company Number: GB-SP-2013-03411

PATIENT
  Age: 94 Year
  Sex: Male

DRUGS (1)
  1. BCG  THERAPEUTICS [Suspect]
     Indication: BLADDER CANCER
     Route: 043

REACTIONS (4)
  - Bone tuberculosis [Unknown]
  - Intervertebral discitis [Unknown]
  - Mycotic aneurysm [Unknown]
  - Back pain [Unknown]
